FAERS Safety Report 6558307-8 (Version None)
Quarter: 2010Q1

REPORT INFORMATION
  Report Type: 
  Country: None (occurrence: None)
  Receive Date: 20100129
  Receipt Date: 20100118
  Transmission Date: 20100710
  Serious: Yes (Hospitalization)
  Sender: FDA-Public Use
  Company Number: US-JNJFOC-20100107756

PATIENT
  Sex: Female
  Weight: 58.97 kg

DRUGS (2)
  1. PARAFON FORTE [Suspect]
     Indication: BACK PAIN
     Dosage: 750 MG: 500 MG ONE AND A HALF, 4 TIMES A DAY
     Route: 048
  2. CHLORZOXAZONE [Suspect]
     Indication: BACK PAIN
     Dosage: 750 MG: 500 MG ONE AND A HALF, 4 TIMES A DAY
     Route: 048

REACTIONS (5)
  - DRUG INEFFECTIVE [None]
  - GOITRE [None]
  - JOINT INJURY [None]
  - OEDEMA PERIPHERAL [None]
  - THYROID FUNCTION TEST ABNORMAL [None]
